FAERS Safety Report 16086601 (Version 7)
Quarter: 2019Q3

REPORT INFORMATION
  Report Type: Report from Study
  Country: US (occurrence: US)
  Receive Date: 20190318
  Receipt Date: 20190822
  Transmission Date: 20191004
  Serious: Yes (Other)
  Sender: FDA-Public Use
  Company Number: US-TAKEDA-2019TUS006705

PATIENT
  Age: 62 Year
  Sex: Female

DRUGS (2)
  1. BRIGATINIB [Suspect]
     Active Substance: BRIGATINIB
     Indication: ANAPLASTIC LYMPHOMA KINASE GENE MUTATION
     Dosage: UNK
     Route: 048
  2. BRIGATINIB [Suspect]
     Active Substance: BRIGATINIB
     Indication: NON-SMALL CELL LUNG CANCER METASTATIC

REACTIONS (25)
  - Pain in extremity [Recovering/Resolving]
  - Alopecia [Unknown]
  - Chest pain [Unknown]
  - Sleep disorder [Recovering/Resolving]
  - Dry mouth [Recovered/Resolved]
  - Gait disturbance [Unknown]
  - Musculoskeletal pain [Recovering/Resolving]
  - Decreased appetite [Recovering/Resolving]
  - Disease progression [Unknown]
  - Discomfort [Unknown]
  - Dysphagia [Unknown]
  - Fatigue [Recovering/Resolving]
  - Dyspnoea [Recovering/Resolving]
  - Memory impairment [Recovering/Resolving]
  - Constipation [Recovered/Resolved]
  - Depressed mood [Recovered/Resolved]
  - Depression [Unknown]
  - Hypoaesthesia [Recovered/Resolved]
  - Cough [Recovering/Resolving]
  - Paraesthesia [Recovered/Resolved]
  - Rash generalised [Unknown]
  - Somnolence [Recovered/Resolved]
  - Oropharyngeal pain [Recovered/Resolved]
  - Pain [Unknown]
  - Emotional distress [Recovering/Resolving]

NARRATIVE: CASE EVENT DATE: 20190401
